FAERS Safety Report 14408661 (Version 1)
Quarter: 2018Q1

REPORT INFORMATION
  Report Type: Report from Study
  Country: None (occurrence: US)
  Receive Date: 20180119
  Receipt Date: 20180119
  Transmission Date: 20180509
  Serious: Yes (Other)
  Sender: FDA-Public Use
  Company Number: US-ABBVIE-16P-163-1670592-00

PATIENT
  Age: 59 Year
  Sex: Male

DRUGS (1)
  1. VIEKIRA PAK [Suspect]
     Active Substance: DASABUVIR\OMBITASVIR\PARITAPREVIR\RITONAVIR
     Indication: CHRONIC HEPATITIS C
     Route: 048
     Dates: start: 20150827, end: 20150829

REACTIONS (16)
  - Headache [Unknown]
  - Hypertension [Unknown]
  - Constipation [Unknown]
  - Acute kidney injury [Unknown]
  - Dizziness [Unknown]
  - Impaired gastric emptying [Unknown]
  - Hyperkalaemia [Unknown]
  - Eye pain [Unknown]
  - Vomiting [Unknown]
  - Anaemia [Unknown]
  - Sleep apnoea syndrome [Unknown]
  - Abdominal pain [Unknown]
  - Dyspnoea [Unknown]
  - Dizziness [Unknown]
  - Hypertension [Unknown]
  - Nausea [Unknown]

NARRATIVE: CASE EVENT DATE: 20150829
